FAERS Safety Report 7080513-7 (Version None)
Quarter: 2010Q4

REPORT INFORMATION
  Report Type: 
  Country: None (occurrence: None)
  Receive Date: 20101103
  Receipt Date: 20101022
  Transmission Date: 20110411
  Serious: Yes (Other)
  Sender: FDA-Public Use
  Company Number: DE-JNJFOC-20100808617

PATIENT
  Sex: Female
  Weight: 90 kg

DRUGS (7)
  1. STELARA [Suspect]
     Indication: PSORIASIS
     Route: 058
     Dates: start: 20090609
  2. BEROTEC [Concomitant]
     Route: 055
  3. AVANDAMET [Concomitant]
     Route: 048
  4. METFORMIN [Concomitant]
     Route: 048
  5. ACE INHIBITOR [Concomitant]
     Route: 048
  6. TICLOPIDINE HCL [Concomitant]
     Route: 048
  7. SIMVAHEXAL [Concomitant]
     Route: 048

REACTIONS (1)
  - LATENT TUBERCULOSIS [None]
